FAERS Safety Report 24601007 (Version 1)
Quarter: 2024Q4

REPORT INFORMATION
  Report Type: Spontaneous
  Country: PT (occurrence: PT)
  Receive Date: 20241110
  Receipt Date: 20241110
  Transmission Date: 20250114
  Serious: Yes (Other)
  Sender: MERCK
  Company Number: PT-009507513-2411PRT001816

PATIENT
  Sex: Female

DRUGS (12)
  1. PEMBROLIZUMAB [Suspect]
     Active Substance: PEMBROLIZUMAB
     Indication: Breast cancer metastatic
     Dates: start: 20240202, end: 20240809
  2. CARBOPLATIN [Suspect]
     Active Substance: CARBOPLATIN
     Indication: Breast cancer metastatic
     Dates: start: 20240202, end: 20240809
  3. CARBOPLATIN [Suspect]
     Active Substance: CARBOPLATIN
     Indication: Human epidermal growth factor receptor positive
  4. PACLITAXEL [Suspect]
     Active Substance: PACLITAXEL
     Indication: Breast cancer metastatic
     Dates: start: 20240202, end: 20240809
  5. PACLITAXEL [Suspect]
     Active Substance: PACLITAXEL
     Indication: Human epidermal growth factor receptor positive
  6. BISOPROLOL FUMARATE [Concomitant]
     Active Substance: BISOPROLOL FUMARATE
     Dosage: 5 MILLIGRAM, BID
  7. DIGOXIN [Concomitant]
     Active Substance: DIGOXIN
  8. ELIQUIS [Concomitant]
     Active Substance: APIXABAN
     Dosage: 5 MG, 2ID
  9. ATORVASTATIN [Concomitant]
     Active Substance: ATORVASTATIN
     Dosage: 10 MG
  10. CANDESARTAN CILEXETIL\HYDROCHLOROTHIAZIDE [Concomitant]
     Active Substance: CANDESARTAN CILEXETIL\HYDROCHLOROTHIAZIDE
  11. LASIX [Concomitant]
     Active Substance: FUROSEMIDE
  12. DAPAGLIFLOZIN [Concomitant]
     Active Substance: DAPAGLIFLOZIN

REACTIONS (4)
  - Neutropenia [Unknown]
  - Anaemia [Unknown]
  - Breast conserving surgery [Unknown]
  - Axillary lymphadenectomy [Unknown]

NARRATIVE: CASE EVENT DATE: 20240101
